FAERS Safety Report 6200850-5 (Version None)
Quarter: 2009Q2

REPORT INFORMATION
  Report Type: 
  Country: None (occurrence: None)
  Receive Date: 20090522
  Receipt Date: 20081007
  Transmission Date: 20091009
  Serious: No
  Sender: FDA-Public Use
  Company Number: US-ALEXION-A200800251

PATIENT
  Sex: Male

DRUGS (2)
  1. SOLIRIS [Suspect]
     Dates: start: 20080924, end: 20080924
  2. SOLIRIS [Suspect]
     Dosage: 900 MG, SINGLE
     Route: 042
     Dates: start: 20080929, end: 20080929

REACTIONS (3)
  - HAEMOLYSIS [None]
  - STRESS [None]
  - WEIGHT DECREASED [None]
